FAERS Safety Report 20299371 (Version 4)
Quarter: 2022Q1

REPORT INFORMATION
  Report Type: Spontaneous
  Country: BE (occurrence: BE)
  Receive Date: 20220105
  Receipt Date: 20220117
  Transmission Date: 20220424
  Serious: Yes (Other)
  Sender: FDA-Public Use
  Company Number: BE-NOVARTISPH-NVSC2021BE300209

PATIENT
  Sex: Male
  Weight: 58 kg

DRUGS (24)
  1. AMOXICILLIN [Suspect]
     Active Substance: AMOXICILLIN
     Indication: Product used for unknown indication
     Dosage: UNK
     Route: 065
  2. MOMETASONE [Suspect]
     Active Substance: MOMETASONE
     Indication: Product used for unknown indication
     Dosage: UNK, (2 PUFFS, BID)
     Route: 065
  3. ACETYLCYSTEINE [Suspect]
     Active Substance: ACETYLCYSTEINE
     Indication: Sputum retention
     Dosage: 600 MG
     Route: 065
  4. AZITHROMYCIN [Suspect]
     Active Substance: AZITHROMYCIN
     Indication: Product used for unknown indication
     Dosage: 500 MG, Z3/WEEK
     Route: 065
  5. AMOXICILLIN\CLAVULANATE POTASSIUM [Suspect]
     Active Substance: AMOXICILLIN\CLAVULANATE POTASSIUM
     Indication: Product used for unknown indication
     Dosage: 875 MG, QD, 875 MG, Z 3 DAYS
     Route: 065
  6. CALCIUM CARBONATE [Suspect]
     Active Substance: CALCIUM CARBONATE
     Indication: Product used for unknown indication
     Dosage: 1 G, QD
     Route: 065
  7. MEDROL [Suspect]
     Active Substance: METHYLPREDNISOLONE
     Indication: Sinusitis
     Dosage: UNK, (7 MG/L)
     Route: 065
  8. MEDROL [Suspect]
     Active Substance: METHYLPREDNISOLONE
     Indication: Asthma
     Dosage: 2 MG, QD
     Route: 065
  9. MEDROL [Suspect]
     Active Substance: METHYLPREDNISOLONE
     Dosage: UNK UNK, QD, 4 MG/L
     Route: 065
     Dates: start: 202010
  10. CHOLECALCIFEROL [Suspect]
     Active Substance: CHOLECALCIFEROL
     Indication: Product used for unknown indication
     Dosage: UNK
     Route: 065
  11. MONTELUKAST SODIUM [Suspect]
     Active Substance: MONTELUKAST SODIUM
     Indication: Product used for unknown indication
     Dosage: 10 MG, QD
     Route: 065
  12. FLUTICASONE FUROATE\VILANTEROL TRIFENATATE [Suspect]
     Active Substance: FLUTICASONE FUROATE\VILANTEROL TRIFENATATE
     Indication: Product used for unknown indication
     Dosage: 1 PUFF(S), QD 184-22 ?G/ACTUATION, 30 ACTUATION INHALER),
     Route: 065
  13. ASPIRIN [Suspect]
     Active Substance: ASPIRIN
     Indication: Product used for unknown indication
     Dosage: UNK
     Route: 065
  14. SPIRIVA [Suspect]
     Active Substance: TIOTROPIUM BROMIDE MONOHYDRATE
     Indication: Product used for unknown indication
     Dosage: UNK, QD 2 PUFF(S)
     Route: 065
  15. NADROPARIN CALCIUM [Suspect]
     Active Substance: NADROPARIN CALCIUM
     Indication: Product used for unknown indication
     Dosage: UNK
     Route: 065
  16. AUGMENTIN [Suspect]
     Active Substance: AMOXICILLIN\CLAVULANATE POTASSIUM
     Indication: Product used for unknown indication
     Dosage: UNK
     Route: 065
  17. XARELTO [Suspect]
     Active Substance: RIVAROXABAN
     Indication: Pulmonary embolism
     Dosage: 15 MG, QD
     Route: 065
  18. NUCALA [Suspect]
     Active Substance: MEPOLIZUMAB
     Indication: Asthma
     Dosage: 100 MG, QMO (EVERY 4 WEEKS)
     Route: 058
     Dates: start: 20171013
  19. NUCALA [Suspect]
     Active Substance: MEPOLIZUMAB
     Dosage: UNK
     Route: 065
     Dates: start: 2019
  20. FENOTEROL HYDROBROMIDE [Suspect]
     Active Substance: FENOTEROL HYDROBROMIDE
     Indication: Dyspnoea
     Dosage: UNK, BID 2 PUFF(S)
     Route: 065
  21. FLUTICASONE PROPIONATE [Suspect]
     Active Substance: FLUTICASONE PROPIONATE
     Indication: Product used for unknown indication
     Dosage: 250 UG, BID 2 PUFF(S)
     Route: 065
     Dates: start: 201707
  22. INFLUENZA VIRUS VACCINE [Suspect]
     Active Substance: INFLUENZA VIRUS VACCINE
     Indication: Product used for unknown indication
     Dosage: UNK
     Route: 065
  23. AZITHROMYCIN [Suspect]
     Active Substance: AZITHROMYCIN
     Indication: Product used for unknown indication
     Dosage: UNK
     Route: 065
  24. PNEUMOCOCCAL VACCINE POLYVALENT NOS [Suspect]
     Active Substance: PNEUMOCOCCAL VACCINE POLYVALENT
     Indication: Pneumococcal infection
     Dosage: UNK
     Route: 065

REACTIONS (18)
  - Neutrophil count abnormal [Unknown]
  - Sputum purulent [Unknown]
  - Asthma [Unknown]
  - Staphylococcal infection [Unknown]
  - Pulmonary embolism [Unknown]
  - Condition aggravated [Unknown]
  - Drug ineffective [Unknown]
  - Bronchiectasis [Unknown]
  - Bacterial infection [Unknown]
  - Thrombosis [Unknown]
  - Renal colic [Unknown]
  - Productive cough [Unknown]
  - Haematoma [Unknown]
  - Cough [Unknown]
  - Pain [Unknown]
  - Dyspnoea [Unknown]
  - Chronic sinusitis [Unknown]
  - Upper-airway cough syndrome [Unknown]

NARRATIVE: CASE EVENT DATE: 20170501
